FAERS Safety Report 23877616 (Version 1)
Quarter: 2024Q2

REPORT INFORMATION
  Report Type: Spontaneous
  Country: SI (occurrence: SI)
  Receive Date: 20240521
  Receipt Date: 20240521
  Transmission Date: 20240716
  Serious: Yes (Other)
  Sender: FDA-Public Use
  Company Number: SI-002147023-NVSC2024SI102828

PATIENT
  Age: 37 Year
  Sex: Female

DRUGS (1)
  1. KESIMPTA [Suspect]
     Active Substance: OFATUMUMAB
     Indication: Multiple sclerosis
     Dosage: UNK
     Route: 065

REACTIONS (12)
  - Intracranial mass [Unknown]
  - Dysmetria [Unknown]
  - COVID-19 [Recovered/Resolved]
  - Fatigue [Unknown]
  - Brain fog [Unknown]
  - Dizziness [Unknown]
  - Feeling abnormal [Recovered/Resolved]
  - Muscular weakness [Recovered/Resolved]
  - Gait disturbance [Recovered/Resolved]
  - Clumsiness [Recovered/Resolved]
  - Fine motor skill dysfunction [Unknown]
  - Pyrexia [Recovered/Resolved]
